FAERS Safety Report 19897995 (Version 1)
Quarter: 2021Q3

REPORT INFORMATION
  Report Type: Report from Study
  Country: US (occurrence: US)
  Receive Date: 20210930
  Receipt Date: 20210930
  Transmission Date: 20211014
  Serious: Yes (Hospitalization)
  Sender: FDA-Public Use
  Company Number: US-QED THERAPEUTICS-2118972

PATIENT
  Age: 39 Year
  Sex: Female
  Weight: 55.2 kg

DRUGS (6)
  1. NORMAL SALINE [Concomitant]
     Active Substance: SODIUM CHLORIDE
     Route: 040
     Dates: start: 20210302, end: 20210302
  2. TURMERIC [CURCUMA LONGA] [Concomitant]
     Active Substance: HERBALS\TURMERIC
     Route: 048
     Dates: start: 2020
  3. MILK THISTLE [SILYBUM MARIANUM] [Concomitant]
     Active Substance: DIETARY SUPPLEMENT\HERBALS\MILK THISTLE
     Route: 048
     Dates: start: 2020
  4. TRUSELTIQ [Suspect]
     Active Substance: INFIGRATINIB
     Indication: CHOLANGIOCARCINOMA
     Route: 048
     Dates: start: 20210210, end: 20210921
  5. PROCHLORPERAZINE. [Concomitant]
     Active Substance: PROCHLORPERAZINE
     Route: 048
     Dates: start: 20210210, end: 20210304
  6. VITAMIN B12 [Concomitant]
     Active Substance: CYANOCOBALAMIN
     Route: 048
     Dates: start: 2020, end: 20210302

REACTIONS (3)
  - Fatigue [Recovered/Resolved]
  - Hyperphosphataemia [Recovered/Resolved]
  - Dizziness [Recovered/Resolved]

NARRATIVE: CASE EVENT DATE: 20210303
